FAERS Safety Report 6889648-2 (Version None)
Quarter: 2010Q3

REPORT INFORMATION
  Report Type: 
  Country: None (occurrence: None)
  Receive Date: 20100730
  Receipt Date: 20080331
  Transmission Date: 20110219
  Serious: No
  Sender: FDA-Public Use
  Company Number: US-PFIZER INC-2008028254

PATIENT
  Sex: Male
  Weight: 79.38 kg

DRUGS (3)
  1. LIPITOR [Suspect]
     Indication: BLOOD CHOLESTEROL ABNORMAL
     Dates: start: 20030101, end: 20080325
  2. TENORMIN [Concomitant]
     Indication: HYPERTENSION
  3. NORVASC [Concomitant]

REACTIONS (3)
  - FATIGUE [None]
  - MUSCLE TWITCHING [None]
  - MUSCULAR WEAKNESS [None]
